FAERS Safety Report 6115964-8 (Version None)
Quarter: 2009Q1

REPORT INFORMATION
  Report Type: 
  Country: None (occurrence: None)
  Receive Date: 20090314
  Receipt Date: 20081204
  Transmission Date: 20090719
  Serious: No
  Sender: FDA-Public Use
  Company Number: US-ABBOTT-08P-163-0471454-00

PATIENT
  Sex: Female
  Weight: 50.848 kg

DRUGS (4)
  1. HUMIRA [Suspect]
     Indication: CROHN'S DISEASE
     Route: 058
     Dates: start: 20070101
  2. HUMIRA [Suspect]
     Route: 058
     Dates: start: 20070625, end: 20070625
  3. HUMIRA [Suspect]
     Route: 058
  4. VITAMIN TAB [Concomitant]
     Indication: PREGNANCY
     Route: 048
     Dates: start: 20080501

REACTIONS (2)
  - ACCIDENTAL EXPOSURE [None]
  - BRONCHITIS [None]
